FAERS Safety Report 20964668 (Version 1)
Quarter: 2022Q2

REPORT INFORMATION
  Report Type: Spontaneous
  Country: DE (occurrence: None)
  Receive Date: 20220615
  Receipt Date: 20220615
  Transmission Date: 20220721
  Serious: Yes (Hospitalization)
  Sender: FDA-Public Use
  Company Number: 2022A215290

PATIENT
  Age: 75 Year
  Sex: Female

DRUGS (2)
  1. CALQUENCE [Suspect]
     Active Substance: ACALABRUTINIB
     Route: 048
     Dates: start: 20220325
  2. CALQUENCE [Suspect]
     Active Substance: ACALABRUTINIB
     Route: 048

REACTIONS (6)
  - Rash [Not Recovered/Not Resolved]
  - Pyrexia [Unknown]
  - Dizziness [Unknown]
  - Headache [Unknown]
  - Rash erythematous [Unknown]
  - Skin burning sensation [Unknown]
